FAERS Safety Report 16825372 (Version 1)
Quarter: 2019Q3

REPORT INFORMATION
  Report Type: Spontaneous
  Country: DE (occurrence: DE)
  Receive Date: 20190919
  Receipt Date: 20190919
  Transmission Date: 20191005
  Serious: Yes (Life-Threatening, Other)
  Sender: FDA-Public Use
  Company Number: DE-LUPIN PHARMACEUTICALS INC.-2019-05982

PATIENT
  Age: 51 Year
  Sex: Male

DRUGS (3)
  1. REGORAFENIB. [Suspect]
     Active Substance: REGORAFENIB
     Indication: SMALL INTESTINE CARCINOMA RECURRENT
     Dosage: UNK
     Route: 065
     Dates: start: 201301
  2. IMATINIB MESYLATE. [Suspect]
     Active Substance: IMATINIB MESYLATE
     Indication: SMALL INTESTINE CARCINOMA RECURRENT
     Dosage: 400 MILLIGRAM, QD
     Route: 065
  3. SUNITINIB [Suspect]
     Active Substance: SUNITINIB
     Indication: SMALL INTESTINE CARCINOMA RECURRENT
     Dosage: UNK
     Route: 065
     Dates: start: 2012

REACTIONS (2)
  - Disease progression [Unknown]
  - Drug resistance [Unknown]

NARRATIVE: CASE EVENT DATE: 201209
